FAERS Safety Report 4552390-7 (Version None)
Quarter: 2005Q1

REPORT INFORMATION
  Report Type: 
  Country: None (occurrence: None)
  Receive Date: 20050114
  Receipt Date: 20040412
  Transmission Date: 20050727
  Serious: No
  Sender: FDA-Public Use
  Company Number: US-GLAXOSMITHKLINE-A0506853A

PATIENT
  Age: 50 Year
  Sex: Female

DRUGS (7)
  1. IMITREX [Suspect]
     Indication: MIGRAINE
     Dosage: 6MG AS REQUIRED
     Route: 058
     Dates: start: 19950101
  2. IMITREX [Suspect]
     Dosage: 100MG AS REQUIRED
     Route: 048
     Dates: start: 19960101
  3. WELLBUTRIN [Concomitant]
  4. LITHIUM [Concomitant]
  5. CELEXA [Concomitant]
  6. PREMARIN [Concomitant]
  7. CYTOTEC [Concomitant]

REACTIONS (3)
  - ASTHENIA [None]
  - MUSCLE TIGHTNESS [None]
  - PAIN [None]
